FAERS Safety Report 14499350 (Version 1)
Quarter: 2018Q1

REPORT INFORMATION
  Report Type: Spontaneous
  Country: US (occurrence: US)
  Receive Date: 20180206
  Receipt Date: 20180206
  Transmission Date: 20180509
  Serious: Yes (Other)
  Sender: FDA-Public Use
  Company Number: None

PATIENT
  Age: 71 Year
  Sex: Male
  Weight: 69.75 kg

DRUGS (8)
  1. PRAVASTATIN. [Concomitant]
     Active Substance: PRAVASTATIN
  2. GARLIC. [Concomitant]
     Active Substance: GARLIC
  3. BENAZEPRIL [Concomitant]
     Active Substance: BENAZEPRIL HYDROCHLORIDE
  4. CLOPIDOGREL [Suspect]
     Active Substance: CLOPIDOGREL BISULFATE
     Indication: PLATELET DISORDER
     Dosage: ?          QUANTITY:90 TABLET(S);?
     Route: 048
     Dates: start: 20160815, end: 20180124
  5. COENZYME Q10 [Concomitant]
     Active Substance: UBIDECARENONE
  6. GINKGO BILIBO [Concomitant]
  7. ESTER C [Concomitant]
  8. RED KRILL [Concomitant]

REACTIONS (5)
  - Muscle spasms [None]
  - Paraesthesia [None]
  - Product label on wrong product [None]
  - Product quality issue [None]
  - Therapy cessation [None]

NARRATIVE: CASE EVENT DATE: 20180124
